FAERS Safety Report 22616049 (Version 1)
Quarter: 2023Q2

REPORT INFORMATION
  Report Type: Other
  Country: KR (occurrence: None)
  Receive Date: 20230619
  Receipt Date: 20230619
  Transmission Date: 20230722
  Serious: Yes (Hospitalization)
  Sender: FDA-Public Use
  Company Number: KR-ROCHE-3368233

PATIENT
  Age: 58 Year
  Sex: Female
  Weight: 53 kg

DRUGS (15)
  1. PERJETA [Suspect]
     Active Substance: PERTUZUMAB
     Indication: Product used for unknown indication
     Route: 065
     Dates: start: 20191203, end: 20191203
  2. TRASTUZUMAB [Suspect]
     Active Substance: TRASTUZUMAB
     Indication: Product used for unknown indication
     Route: 065
     Dates: start: 20191203, end: 20191203
  3. CARBOPLATIN [Suspect]
     Active Substance: CARBOPLATIN
     Indication: Product used for unknown indication
     Route: 065
     Dates: start: 20191203, end: 20191203
  4. DOCETAXEL [Suspect]
     Active Substance: DOCETAXEL
     Indication: Product used for unknown indication
     Route: 065
     Dates: start: 20191203, end: 20191203
  5. PIPRINHYDRINATE [Concomitant]
     Route: 065
     Dates: start: 20191203, end: 20191203
  6. SUCRALFATE [Concomitant]
     Active Substance: SUCRALFATE
     Indication: Gastric ulcer
     Dosage: 1 DOSAGE FORM
     Dates: start: 2017, end: 20190923
  7. FLUNITRAZEPAM [Concomitant]
     Active Substance: FLUNITRAZEPAM
     Indication: Vertigo positional
     Dosage: 1 DOSAGE FORM
     Dates: start: 2017
  8. DIMENHYDRINATE [Concomitant]
     Active Substance: DIMENHYDRINATE
     Indication: Vertigo positional
     Dosage: 1 DOSAGE FORM
     Dates: start: 2017
  9. ACETAMINOPHEN [Concomitant]
     Active Substance: ACETAMINOPHEN
     Indication: Headache
     Dosage: 1 DOSAGE FORM
     Dates: start: 2017, end: 20191223
  10. ACETAMINOPHEN [Concomitant]
     Active Substance: ACETAMINOPHEN
     Indication: Myalgia
     Dosage: 1 DOSAGE FORM
     Dates: start: 20191203, end: 20191203
  11. DIAZEPAM [Concomitant]
     Active Substance: DIAZEPAM
     Indication: Vertigo positional
     Dates: start: 2017
  12. DEXAMETHASONE [Concomitant]
     Active Substance: DEXAMETHASONE
     Dates: start: 20191204, end: 20191204
  13. FAMOTIDINE [Concomitant]
     Active Substance: FAMOTIDINE
     Indication: Gastric ulcer
     Dates: start: 20191204, end: 20191209
  14. METOCLOPRAMIDE [Concomitant]
     Active Substance: METOCLOPRAMIDE
     Dates: start: 20191204, end: 20191209
  15. MOSAPRIDE CITRATE DIHYDRATE [Concomitant]
     Active Substance: MOSAPRIDE CITRATE DIHYDRATE
     Indication: Dyspepsia
     Dosage: 1 DOSAGE FORM
     Dates: start: 2017

REACTIONS (1)
  - Enteritis [Recovered/Resolved]

NARRATIVE: CASE EVENT DATE: 20191211
